FAERS Safety Report 5045259-5 (Version None)
Quarter: 2006Q3

REPORT INFORMATION
  Report Type: 
  Country: None (occurrence: None)
  Receive Date: 20060707
  Receipt Date: 20060628
  Transmission Date: 20061208
  Serious: Yes (Other)
  Sender: FDA-Public Use
  Company Number: HK-GILEAD-2006-0009808

PATIENT
  Sex: Male

DRUGS (1)
  1. HEPSERA [Suspect]
     Indication: HEPATITIS B
     Route: 048

REACTIONS (3)
  - BLOOD CREATININE INCREASED [None]
  - NEPHROPATHY TOXIC [None]
  - PROTEINURIA [None]
